FAERS Safety Report 9013497 (Version 1)
Quarter: 2013Q1

REPORT INFORMATION
  Report Type: Spontaneous
  Country: US (occurrence: None)
  Receive Date: 20130107
  Receipt Date: 20130107
  Transmission Date: 20140127
  Serious: Yes (Hospitalization)
  Sender: FDA-Public Use
  Company Number: None

PATIENT
  Age: 88 Year
  Sex: Male
  Weight: 91.6 kg

DRUGS (2)
  1. ASPIRIN [Suspect]
     Indication: PROPHYLAXIS
     Dosage: 81 MG EVERY DAY PO
     Route: 048
     Dates: start: 20090501, end: 20121025
  2. CELECOXIB [Suspect]
     Indication: PAIN

REACTIONS (3)
  - Diarrhoea haemorrhagic [None]
  - Lower gastrointestinal haemorrhage [None]
  - Haemorrhage [None]
